FAERS Safety Report 21093958 (Version 1)
Quarter: 2022Q3

REPORT INFORMATION
  Report Type: Spontaneous
  Country: US (occurrence: None)
  Receive Date: 20220718
  Receipt Date: 20220718
  Transmission Date: 20221026
  Serious: No
  Sender: FDA-Public Use
  Company Number: 2022A255371

PATIENT
  Sex: Female
  Weight: 155.1 kg

DRUGS (1)
  1. KOSELUGO [Suspect]
     Active Substance: SELUMETINIB
     Indication: Brain neoplasm malignant
     Route: 048
     Dates: start: 20210501

REACTIONS (5)
  - Malaise [Unknown]
  - Pruritus [Unknown]
  - Hypersomnia [Unknown]
  - Vomiting [Unknown]
  - Fatigue [Unknown]
